FAERS Safety Report 5612067-3 (Version None)
Quarter: 2008Q1

REPORT INFORMATION
  Report Type: 
  Country: None (occurrence: None)
  Receive Date: 20080204
  Receipt Date: 20080128
  Transmission Date: 20080703
  Serious: Yes (Hospitalization)
  Sender: FDA-Public Use
  Company Number: PHBS2008IT01542

PATIENT
  Age: 31 Year
  Sex: Female

DRUGS (1)
  1. SALAGEN [Suspect]
     Indication: APTYALISM
     Dosage: 5 MG
     Route: 048
     Dates: start: 20030201, end: 20030901

REACTIONS (3)
  - FLUSHING [None]
  - SKIN EXFOLIATION [None]
  - TACHYCARDIA [None]
